FAERS Safety Report 7965636-X (Version None)
Quarter: 2011Q4

REPORT INFORMATION
  Report Type: 
  Country: None (occurrence: None)
  Receive Date: 20111208
  Receipt Date: 20111130
  Transmission Date: 20120403
  Serious: Yes (Other)
  Sender: FDA-Public Use
  Company Number: PHHY2011ES104823

PATIENT

DRUGS (2)
  1. PEGINTERFERON ALFA-2B [Suspect]
     Indication: HEPATITIS C
     Dosage: 100 UG/WEEK
     Route: 058
  2. RIBAVIRIN [Suspect]
     Indication: HEPATITIS C
     Dosage: 800 MG, UNK
     Route: 048

REACTIONS (8)
  - LUNG INFILTRATION [None]
  - PULMONARY SARCOIDOSIS [None]
  - CUTANEOUS SARCOIDOSIS [None]
  - SKIN LESION [None]
  - HYPERCALCAEMIA [None]
  - FATIGUE [None]
  - HILAR LYMPHADENOPATHY [None]
  - ARTHRALGIA [None]
